FAERS Safety Report 9278061 (Version 2)
Quarter: 2013Q2

REPORT INFORMATION
  Report Type: Spontaneous
  Country: BR (occurrence: BR)
  Receive Date: 20130508
  Receipt Date: 20130621
  Transmission Date: 20140414
  Serious: Yes (Other)
  Sender: FDA-Public Use
  Company Number: BR-AMGEN-BRASP2013012327

PATIENT
  Age: 43 Year
  Sex: Female
  Weight: 58 kg

DRUGS (9)
  1. ENBREL [Suspect]
     Indication: RHEUMATOID ARTHRITIS
     Dosage: 50 MG, WEEKLY
     Route: 058
     Dates: start: 201212, end: 201301
  2. ENBREL [Suspect]
     Dosage: 50 MG, ONCE WEEKLY
     Route: 058
     Dates: start: 20130108
  3. ENBREL [Suspect]
     Dosage: 50 MG, QWK
     Route: 058
     Dates: start: 201303
  4. OMEPRAZOL                          /00661201/ [Concomitant]
     Dosage: 2 TABLETS IN THE MORNING AND 2 TABLETS AT NIGHT
  5. METHOTREXATE [Concomitant]
     Indication: ARTHRITIS
     Dosage: 6 TABLETS OF UNSPECIFIED DOSE ON TUESDAY
     Dates: start: 2010
  6. METHOTREXATE [Concomitant]
     Dosage: 6 TABLETS OR CAPSULES, UNSPECIFIED DOSE, ONCE WEEKLY
  7. METHOTREXATE [Concomitant]
     Dosage: 6 TABLETS OR CAPSULES (NOR CLEARLY REPORTED) , UNSPECIFIED DOSE, ONCE WEEKLY
  8. FOLIC ACID [Concomitant]
     Dosage: 2 TABLETS OF AN UNSPECIFIED DOSE ON WEDNESDAY
     Dates: start: 2010
  9. CHLOROQUINE [Concomitant]
     Indication: ARTHRITIS
     Dosage: 1 TABLET OR CAPSULE (50MG), DAILY

REACTIONS (10)
  - Dysuria [Not Recovered/Not Resolved]
  - Headache [Not Recovered/Not Resolved]
  - Hypersensitivity [Unknown]
  - Urinary tract infection [Not Recovered/Not Resolved]
  - Influenza [Unknown]
  - Rhinitis [Not Recovered/Not Resolved]
  - Injection site swelling [Unknown]
  - Injection site pain [Not Recovered/Not Resolved]
  - Injection site erythema [Unknown]
  - Injection site pruritus [Unknown]
